FAERS Safety Report 4320707-4 (Version None)
Quarter: 2004Q1

REPORT INFORMATION
  Report Type: 
  Country: None (occurrence: None)
  Receive Date: 20040318
  Receipt Date: 20040312
  Transmission Date: 20041129
  Serious: Yes (Other)
  Sender: FDA-Public Use
  Company Number: 54756/424

PATIENT
  Age: 26 Year
  Sex: Female

DRUGS (1)
  1. LEVONORGESTREL [Suspect]
     Indication: POST COITAL CONTRACEPTION
     Dosage: 750 UG, 2X/DAY ORAL
     Route: 048

REACTIONS (1)
  - DEEP VEIN THROMBOSIS [None]
